FAERS Safety Report 6243059-1 (Version None)
Quarter: 2009Q2

REPORT INFORMATION
  Report Type: 
  Country: None (occurrence: None)
  Receive Date: 20090624
  Receipt Date: 20090612
  Transmission Date: 20091009
  Serious: Yes (Other)
  Sender: FDA-Public Use
  Company Number: US-ELI_LILLY_AND_COMPANY-US200903000485

PATIENT
  Sex: Female

DRUGS (3)
  1. CYMBALTA [Suspect]
  2. TYLENOL (CAPLET) [Concomitant]
  3. VICODIN [Concomitant]

REACTIONS (2)
  - DRUG INTERACTION [None]
  - HEPATIC FAILURE [None]
